FAERS Safety Report 12388471 (Version 1)
Quarter: 2016Q2

REPORT INFORMATION
  Report Type: Spontaneous
  Country: US (occurrence: US)
  Receive Date: 20160520
  Receipt Date: 20160520
  Transmission Date: 20160815
  Serious: No
  Sender: FDA-Public Use
  Company Number: US-ELI_LILLY_AND_COMPANY-US201604008293

PATIENT
  Sex: Female

DRUGS (2)
  1. TRULICITY [Suspect]
     Active Substance: DULAGLUTIDE
     Indication: GROWTH HORMONE DEFICIENCY
     Dosage: 0.75 MG, UNKNOWN
     Route: 065
     Dates: start: 201510, end: 201602
  2. TRULICITY [Suspect]
     Active Substance: DULAGLUTIDE
     Dosage: 1.5 MG, UNKNOWN
     Route: 065
     Dates: start: 201602

REACTIONS (6)
  - Frequent bowel movements [Unknown]
  - Diarrhoea [Unknown]
  - Frequent bowel movements [Unknown]
  - Blood glucose decreased [Unknown]
  - Glycosylated haemoglobin increased [Unknown]
  - Abdominal discomfort [Unknown]

NARRATIVE: CASE EVENT DATE: 201510
